FAERS Safety Report 8589465-1 (Version None)
Quarter: 2012Q3

REPORT INFORMATION
  Report Type: 
  Country: None (occurrence: None)
  Receive Date: 20120813
  Receipt Date: 20120803
  Transmission Date: 20120928
  Serious: Yes (Hospitalization, Other)
  Sender: FDA-Public Use
  Company Number: US-SANOFI-AVENTIS-2012SA019678

PATIENT
  Age: 59 Year
  Sex: Female
  Weight: 49 kg

DRUGS (19)
  1. ACETAMINOPHEN [Concomitant]
  2. OXYCODONE [Concomitant]
  3. LEVOFLOXACIN [Concomitant]
  4. VITAMIN D [Concomitant]
  5. FLUOXETINE HCL [Concomitant]
  6. AMBIEN [Concomitant]
  7. ERLOTINIB HYDROCHLORIDE [Suspect]
     Indication: NON-SMALL CELL LUNG CANCER
     Dosage: DOSE SCHEDULE: FROM DAYS 2-19/ 21 DAYS
     Route: 048
     Dates: start: 20120301, end: 20120308
  8. DEXAMETHASONE [Concomitant]
  9. LORAZEPAM [Concomitant]
  10. METHYLPHENIDATE [Concomitant]
  11. ADDERALL XR 10 [Concomitant]
  12. ENOXAPARIN [Concomitant]
  13. ERLOTINIB HYDROCHLORIDE [Suspect]
     Dosage: DOSE SCHEDULE: FROM DAYS 2-19/ 21 DAYS
     Route: 048
     Dates: start: 20120320, end: 20120620
  14. ONDANSETRON [Concomitant]
     Indication: NON-SMALL CELL LUNG CANCER
     Dosage: 100MG, 2-19 PER 21 DAYS
     Route: 065
     Dates: start: 20120302, end: 20120308
  15. OXYCODONE HCL [Concomitant]
  16. DOCETAXEL [Suspect]
     Indication: NON-SMALL CELL LUNG CANCER
     Route: 042
     Dates: start: 20120301, end: 20120308
  17. DOCETAXEL [Suspect]
     Dosage: DOSE REDUCED
     Route: 042
     Dates: start: 20120320, end: 20120612
  18. ALBUTEROL [Concomitant]
  19. ACETAMINOPHEN AND HYDROCODONE BITARTRATE [Concomitant]

REACTIONS (9)
  - NAUSEA [None]
  - INCORRECT DOSE ADMINISTERED [None]
  - ABDOMINAL PAIN [None]
  - LIVER FUNCTION TEST ABNORMAL [None]
  - INAPPROPRIATE SCHEDULE OF DRUG ADMINISTRATION [None]
  - FEBRILE NEUTROPENIA [None]
  - PANCREATIC CARCINOMA [None]
  - DIARRHOEA [None]
  - VOMITING [None]
